FAERS Safety Report 10064549 (Version 1)
Quarter: 2014Q2

REPORT INFORMATION
  Report Type: Spontaneous
  Country: US (occurrence: None)
  Receive Date: 20140407
  Receipt Date: 20140407
  Transmission Date: 20141212
  Serious: Yes (Disabling)
  Sender: FDA-Public Use
  Company Number: None

PATIENT
  Age: 68 Year
  Sex: Female
  Weight: 58.97 kg

DRUGS (1)
  1. CLINDAMYCIN [Suspect]
     Indication: WOUND INFECTION
     Dosage: 1 CAPSULE  Q6HRS TAKEN BY MOUTH
     Route: 048
     Dates: start: 20140401

REACTIONS (7)
  - Abdominal pain [None]
  - Abdominal distension [None]
  - Diarrhoea [None]
  - Incontinence [None]
  - Swollen tongue [None]
  - Lip swelling [None]
  - Lip exfoliation [None]
